FAERS Safety Report 20922834 (Version 1)
Quarter: 2022Q2

REPORT INFORMATION
  Report Type: Spontaneous
  Country: US (occurrence: US)
  Receive Date: 20220607
  Receipt Date: 20220607
  Transmission Date: 20220721
  Serious: Yes (Hospitalization)
  Sender: FDA-Public Use
  Company Number: US-STRIDES ARCOLAB LIMITED-2022SP003548

PATIENT
  Age: 54 Year
  Sex: Female

DRUGS (4)
  1. TACROLIMUS [Suspect]
     Active Substance: TACROLIMUS
     Indication: Heart transplant
     Dosage: UNK
     Route: 065
  2. MYCOPHENOLATE MOFETIL [Suspect]
     Active Substance: MYCOPHENOLATE MOFETIL
     Indication: Heart transplant
     Dosage: UNK
     Route: 065
  3. MYCOPHENOLATE MOFETIL [Suspect]
     Active Substance: MYCOPHENOLATE MOFETIL
     Dosage: UNK (DOSE REDUCED)
     Route: 065
  4. PREDNISOLONE [Suspect]
     Active Substance: PREDNISOLONE
     Indication: Heart transplant
     Dosage: UNK
     Route: 065

REACTIONS (2)
  - COVID-19 [Unknown]
  - Pneumonia bacterial [Unknown]
